FAERS Safety Report 15729934 (Version 1)
Quarter: 2018Q4

REPORT INFORMATION
  Report Type: Spontaneous
  Country: US (occurrence: US)
  Receive Date: 20181216
  Receipt Date: 20181216
  Transmission Date: 20190205
  Serious: Yes (Other)
  Sender: FDA-Public Use
  Company Number: None

PATIENT
  Age: 75 Year
  Sex: Male
  Weight: 87.75 kg

DRUGS (1)
  1. AMOX/CLAV [Suspect]
     Active Substance: AMOXICILLIN\CLAVULANATE POTASSIUM
     Indication: EAR INFECTION
     Dosage: ?          QUANTITY:20 TABLET(S);?
     Route: 048
     Dates: start: 20180821, end: 20180829

REACTIONS (5)
  - Decreased appetite [None]
  - Gastrointestinal pain [None]
  - Haematochezia [None]
  - Irritable bowel syndrome [None]
  - Asthenia [None]

NARRATIVE: CASE EVENT DATE: 20180821
